FAERS Safety Report 6647014-9 (Version None)
Quarter: 2010Q1

REPORT INFORMATION
  Report Type: 
  Country: None (occurrence: None)
  Receive Date: 20100323
  Receipt Date: 20100104
  Transmission Date: 20100710
  Serious: Yes (Other)
  Sender: FDA-Public Use
  Company Number: A0837781A

PATIENT
  Sex: Female

DRUGS (2)
  1. LAMICTAL XR [Suspect]
     Indication: EPILEPSY
     Route: 048
  2. ORAL CONTRACEPTIVES [Concomitant]

REACTIONS (1)
  - CONVULSION [None]
